FAERS Safety Report 10390108 (Version 1)
Quarter: 2014Q1

REPORT INFORMATION
  Report Type: Spontaneous
  Country: US (occurrence: None)
  Receive Date: 20140306
  Receipt Date: 20140306
  Transmission Date: 20141002
  Serious: Yes (Other)
  Sender: FDA-Public Use
  Company Number: 163-21880-13012204

PATIENT
  Age: 84 Year
  Sex: Male

DRUGS (10)
  1. REVLIMID  (LENALIDOMIDE) (10 MILLIGRAM, CAPSULES) [Suspect]
     Indication: PLASMA CELL MYELOMA
     Dosage: 21 IN 28D
     Route: 048
     Dates: start: 20121029
  2. DECADRON (DEXAMETHASONE) [Concomitant]
  3. ZOMETA (ZOLEDRONIC ACID) [Concomitant]
  4. FLOMAX (TAMSULOSIN HYDROCHLORIDE) [Concomitant]
  5. NORVASC (AMLODIPINE BESILATE) [Concomitant]
  6. SYMBICORT (SYMBICORT TURBUHALER ^DRACO^) [Concomitant]
  7. ASA (ACETYLSALICYLIC ACID) [Concomitant]
  8. NTG (GLYCERYL TRINITRATE) [Concomitant]
  9. SIMVASTATIN (SIMVASTATIN) [Concomitant]
  10. MIRALAX (MACROGOL) [Concomitant]

REACTIONS (3)
  - Full blood count decreased [None]
  - Anaemia [None]
  - Asthenia [None]
